FAERS Safety Report 11499257 (Version 1)
Quarter: 2015Q3

REPORT INFORMATION
  Report Type: Report from Study
  Country: US (occurrence: US)
  Receive Date: 20150913
  Receipt Date: 20150913
  Transmission Date: 20151125
  Serious: No
  Sender: FDA-Public Use
  Company Number: US-AMGEN-USASP2015092628

PATIENT
  Age: 41 Year
  Sex: Female

DRUGS (1)
  1. ENBREL [Suspect]
     Active Substance: ETANERCEPT
     Indication: PSORIASIS
     Dosage: 50 MG, UNK
     Route: 065
     Dates: start: 20150701

REACTIONS (7)
  - Injury associated with device [Unknown]
  - Rhinorrhoea [Unknown]
  - Feeling abnormal [Unknown]
  - Drug dose omission [Unknown]
  - Pyrexia [Unknown]
  - Respiratory tract congestion [Unknown]
  - Wrong technique in product usage process [Unknown]

NARRATIVE: CASE EVENT DATE: 20150701
